FAERS Safety Report 8042872 (Version 6)
Quarter: 2013Q2

REPORT INFORMATION
  Report Type: Report from Study
  Country: GB (occurrence: GB)
  Receive Date: 20110719
  Receipt Date: 20130429
  Transmission Date: 20140414
  Serious: Yes (Hospitalization)
  Sender: FDA-Public Use
  Company Number: GB-BIOGENIDEC-2011BI025832

PATIENT
  Age: 39 Year
  Sex: Female
  Weight: 69 kg

DRUGS (4)
  1. TYSABRI [Suspect]
     Indication: RELAPSING-REMITTING MULTIPLE SCLEROSIS
     Route: 042
     Dates: start: 20100712
  2. FLUOXETINE [Concomitant]
  3. FLUDROCORTISONE [Concomitant]
  4. GABAPENTIN [Concomitant]

REACTIONS (3)
  - Fall [Recovered/Resolved]
  - Radius fracture [Recovered/Resolved]
  - Syncope [Recovered/Resolved]
